FAERS Safety Report 9041060 (Version 1)
Quarter: 2013Q1

REPORT INFORMATION
  Report Type: Spontaneous
  Country: US (occurrence: None)
  Receive Date: 20130124
  Receipt Date: 20130124
  Transmission Date: 20140127
  Serious: No
  Sender: FDA-Public Use
  Company Number: None

PATIENT
  Age: 71 Year
  Sex: Male
  Weight: 61.24 kg

DRUGS (1)
  1. TRIAMCINOLONE [Suspect]
     Indication: RASH
     Dosage: SMALL AMT  SKIN
     Dates: start: 20121219

REACTIONS (3)
  - Pruritus [None]
  - Throat tightness [None]
  - Chest discomfort [None]
